FAERS Safety Report 7768119-5 (Version None)
Quarter: 2011Q3

REPORT INFORMATION
  Report Type: 
  Country: None (occurrence: None)
  Receive Date: 20110922
  Receipt Date: 20110912
  Transmission Date: 20111222
  Serious: Yes (Other)
  Sender: FDA-Public Use
  Company Number: NL-TEVA-301373ISR

PATIENT

DRUGS (2)
  1. VINCRISTINE [Interacting]
     Indication: ACUTE LYMPHOCYTIC LEUKAEMIA
  2. VORICONAZOLE [Suspect]
     Indication: MENINGITIS FUNGAL
     Dosage: 14 MG/KG;
     Route: 042

REACTIONS (3)
  - NEUROPATHY PERIPHERAL [None]
  - CONSTIPATION [None]
  - DRUG INTERACTION [None]
